FAERS Safety Report 21442124 (Version 1)
Quarter: 2022Q4

REPORT INFORMATION
  Report Type: Spontaneous
  Country: US (occurrence: US)
  Receive Date: 20221011
  Receipt Date: 20221011
  Transmission Date: 20230113
  Serious: No
  Sender: FDA-Public Use
  Company Number: US-Sprout Pharmaceuticals, Inc.-2021SP000226

PATIENT
  Sex: Female
  Weight: 69.916 kg

DRUGS (5)
  1. ADDYI [Suspect]
     Active Substance: FLIBANSERIN
     Indication: Libido decreased
     Route: 048
  2. ADDYI [Suspect]
     Active Substance: FLIBANSERIN
     Route: 048
     Dates: start: 20210823, end: 20210823
  3. AMBIEN [Concomitant]
     Active Substance: ZOLPIDEM TARTRATE
     Indication: Insomnia
  4. Vitamin B 12 shots [Concomitant]
     Indication: Product used for unknown indication
  5. Testosterone Booster [Concomitant]
     Indication: Product used for unknown indication

REACTIONS (2)
  - Middle insomnia [Recovered/Resolved]
  - Fatigue [Recovered/Resolved]
